FAERS Safety Report 4481147-0 (Version None)
Quarter: 2004Q3

REPORT INFORMATION
  Report Type: 
  Country: None (occurrence: None)
  Receive Date: 20040923
  Receipt Date: 20040525
  Transmission Date: 20050211
  Serious: No
  Sender: FDA-Public Use
  Company Number: USA040567451

PATIENT
  Age: 89 Year
  Sex: Female

DRUGS (9)
  1. FORTEO [Suspect]
     Indication: OSTEOPOROSIS
     Dosage: 20UG/1 DAY
     Dates: start: 20040512
  2. PROCARDIA [Concomitant]
  3. LOPRESSOR [Concomitant]
  4. COZAAR [Concomitant]
  5. SYNTHROID [Concomitant]
  6. VIOXX [Concomitant]
  7. TUMS (CALCIUM CARBONATE) [Concomitant]
  8. METAMUCIL (PSYLLIUM HYDORPHILIC MUCILLOID) [Concomitant]
  9. MUTLVITAMINS NOS (MULTIVITAMIN NOS) [Concomitant]

REACTIONS (2)
  - INJECTION SITE HAEMORRHAGE [None]
  - INJECTION SITE PAIN [None]
